FAERS Safety Report 5520831-4 (Version None)
Quarter: 2007Q4

REPORT INFORMATION
  Report Type: 
  Country: None (occurrence: None)
  Receive Date: 20071119
  Receipt Date: 20071108
  Transmission Date: 20080405
  Serious: Yes (Other)
  Sender: FDA-Public Use
  Company Number: A0685038A

PATIENT
  Age: 50 Year
  Sex: Female

DRUGS (8)
  1. LAMICTAL [Suspect]
     Indication: BIPOLAR DISORDER
     Dosage: 25MG PER DAY
     Route: 048
     Dates: start: 20070625, end: 20070709
  2. RADIOCONTRAST [Suspect]
     Dates: start: 20070802, end: 20070802
  3. LIPITOR [Concomitant]
  4. ALTACE [Concomitant]
  5. HYDROCHLOROTHIAZIDE [Concomitant]
  6. REMERON [Concomitant]
  7. NIASPAN [Concomitant]
  8. VALTREX [Concomitant]

REACTIONS (8)
  - BLOOD CREATININE INCREASED [None]
  - BLOOD UREA INCREASED [None]
  - FLUID RETENTION [None]
  - HAEMATURIA [None]
  - MYOGLOBIN BLOOD INCREASED [None]
  - NEPHRITIS INTERSTITIAL [None]
  - PYREXIA [None]
  - RENAL FAILURE ACUTE [None]
